FAERS Safety Report 7586442-4 (Version None)
Quarter: 2011Q3

REPORT INFORMATION
  Report Type: 
  Country: None (occurrence: None)
  Receive Date: 20110701
  Receipt Date: 20110622
  Transmission Date: 20111222
  Serious: Yes (Hospitalization)
  Sender: FDA-Public Use
  Company Number: B0729874A

PATIENT
  Sex: Female

DRUGS (3)
  1. MAGNESIUM OXIDE [Concomitant]
     Indication: CONSTIPATION
     Dates: start: 20110208, end: 20110304
  2. OXYCONTIN [Concomitant]
     Indication: PAIN
     Dates: start: 20110208, end: 20110502
  3. TYKERB [Suspect]
     Indication: BREAST CANCER
     Dosage: 1250MG PER DAY
     Route: 048
     Dates: start: 20110208

REACTIONS (1)
  - PNEUMONIA [None]
